FAERS Safety Report 16513632 (Version 3)
Quarter: 2020Q3

REPORT INFORMATION
  Report Type: Report from Study
  Country: FR (occurrence: FR)
  Receive Date: 20190701
  Receipt Date: 20200722
  Transmission Date: 20201102
  Serious: Yes (Death, Other)
  Sender: FDA-Public Use
  Company Number: FR-JAZZ-2019-FR-009006

PATIENT

DRUGS (1)
  1. DEFITELIO [Suspect]
     Active Substance: DEFIBROTIDE SODIUM
     Indication: VENOOCCLUSIVE LIVER DISEASE
     Dosage: 25 MG/KG, QD
     Route: 042
     Dates: start: 20180112, end: 20180116

REACTIONS (5)
  - Graft versus host disease [Unknown]
  - Drug ineffective [Unknown]
  - Disease progression [Fatal]
  - Multiple organ dysfunction syndrome [Unknown]
  - Venoocclusive disease [Fatal]
